FAERS Safety Report 7318882-2 (Version None)
Quarter: 2011Q1

REPORT INFORMATION
  Report Type: 
  Country: None (occurrence: None)
  Receive Date: 20110228
  Receipt Date: 20101222
  Transmission Date: 20110831
  Serious: No
  Sender: FDA-Public Use
  Company Number: US-MYLANLABS-2010S1020423

PATIENT
  Age: 73 Year
  Sex: Female

DRUGS (1)
  1. VALACYCLOVIR HYDROCHLORIDE [Suspect]
     Indication: HERPES OPHTHALMIC
     Route: 048
     Dates: start: 20101028, end: 20101030

REACTIONS (4)
  - DIZZINESS [None]
  - FEELING ABNORMAL [None]
  - DRUG INEFFECTIVE [None]
  - NAUSEA [None]
